FAERS Safety Report 8824031 (Version 10)
Quarter: 2014Q2

REPORT INFORMATION
  Report Type: Spontaneous
  Country: CA (occurrence: CA)
  Receive Date: 20121003
  Receipt Date: 20140529
  Transmission Date: 20141212
  Serious: Yes (Hospitalization, Other)
  Sender: FDA-Public Use
  Company Number: CA-ROCHE-1120979

PATIENT
  Age: 73 Year
  Sex: Female

DRUGS (13)
  1. XOLAIR [Suspect]
     Indication: ASTHMA
     Route: 058
     Dates: start: 20120612
  2. XOLAIR [Suspect]
     Route: 058
     Dates: start: 20130807
  3. XOLAIR [Suspect]
     Route: 058
     Dates: start: 201205
  4. PREDNISONE [Concomitant]
  5. ADVAIR [Concomitant]
  6. SALMETEROL XINAFOATE [Concomitant]
  7. VENTOLIN [Concomitant]
  8. PANTOLOC [Concomitant]
  9. ALENDRONATE [Concomitant]
  10. SINGULAIR [Concomitant]
  11. AERIUS [Concomitant]
  12. PENTASA [Concomitant]
  13. CELEXA (CANADA) [Concomitant]

REACTIONS (15)
  - Pulmonary embolism [Unknown]
  - Peripheral swelling [Unknown]
  - Infection [Unknown]
  - Bronchospasm [Unknown]
  - Lung infection [Unknown]
  - Headache [Recovering/Resolving]
  - Vertebral wedging [Unknown]
  - Paraesthesia [Unknown]
  - Nervous system disorder [Unknown]
  - Bronchitis [Unknown]
  - Tachycardia [Unknown]
  - Myocardial infarction [Unknown]
  - Wound [Unknown]
  - Therapeutic response decreased [Unknown]
  - Movement disorder [Unknown]
